FAERS Safety Report 4731567-1 (Version None)
Quarter: 2005Q3

REPORT INFORMATION
  Report Type: 
  Country: None (occurrence: None)
  Receive Date: 20050720
  Receipt Date: 20040910
  Transmission Date: 20060218
  Serious: Yes (Other)
  Sender: FDA-Public Use
  Company Number: 2004235040US

PATIENT
  Age: 63 Year
  Sex: Female
  Weight: 66.7 kg

DRUGS (3)
  1. CLEOCIN HCL [Suspect]
     Dosage: QD
     Dates: start: 20001101, end: 20001101
  2. FOSAMAX [Concomitant]
  3. BACID [Concomitant]

REACTIONS (2)
  - DIARRHOEA [None]
  - WEIGHT DECREASED [None]
